FAERS Safety Report 7042058-X (Version None)
Quarter: 2010Q4

REPORT INFORMATION
  Report Type: 
  Country: None (occurrence: None)
  Receive Date: 20101013
  Receipt Date: 20100622
  Transmission Date: 20110411
  Serious: No
  Sender: FDA-Public Use
  Company Number: US-ASTRAZENECA-2010SE29137

PATIENT
  Age: 52 Year
  Sex: Male
  Weight: 72.6 kg

DRUGS (3)
  1. SYMBICORT [Suspect]
     Indication: DYSPNOEA
     Dosage: TOTAL DAILY DOSE 320 MCG
     Route: 055
     Dates: start: 20080101, end: 20100301
  2. ALBUTEROL [Concomitant]
  3. COMBIVENT [Concomitant]

REACTIONS (2)
  - DRUG DOSE OMISSION [None]
  - DYSPNOEA [None]
